FAERS Safety Report 19559362 (Version 2)
Quarter: 2022Q1

REPORT INFORMATION
  Report Type: Spontaneous
  Country: JP (occurrence: JP)
  Receive Date: 20210715
  Receipt Date: 20220121
  Transmission Date: 20220423
  Serious: Yes (Other)
  Sender: FDA-Public Use
  Company Number: JP-AMGEN-JPNSP2021106148

PATIENT
  Age: 51 Year
  Sex: Male

DRUGS (2)
  1. BLINCYTO [Suspect]
     Active Substance: BLINATUMOMAB
     Indication: B precursor type acute leukaemia
     Dosage: 24 HR DIV
     Route: 042
     Dates: start: 20210518, end: 20210601
  2. BLINCYTO [Suspect]
     Active Substance: BLINATUMOMAB
     Dosage: 24 HR, DIV
     Route: 042
     Dates: start: 20210628, end: 20210630

REACTIONS (3)
  - Nervous system disorder [Recovered/Resolved]
  - Speech disorder [Recovered/Resolved]
  - Hepatic function abnormal [Recovered/Resolved]
